FAERS Safety Report 5572038-2 (Version None)
Quarter: 2007Q4

REPORT INFORMATION
  Report Type: 
  Country: None (occurrence: None)
  Receive Date: 20071219
  Receipt Date: 20071206
  Transmission Date: 20080405
  Serious: Yes (Other)
  Sender: FDA-Public Use
  Company Number: 2007S1012942

PATIENT
  Age: 38 Year
  Sex: Female
  Weight: 56.6996 kg

DRUGS (8)
  1. PHENYTEK [Suspect]
     Indication: CONVULSION
     Dosage: 200 MG; AT BEDTIME; ORAL
     Route: 048
     Dates: start: 20070601, end: 20070919
  2. WARFARIN (CON.) [Concomitant]
  3. CELLCEPT (CON.) [Concomitant]
  4. PROGRAF (CON.) [Concomitant]
  5. PREDNISONE (CON.) [Concomitant]
  6. NORVASC /00972401/ (CON.) [Concomitant]
  7. LAMICTAL (CON.) [Concomitant]
  8. KEPPRA (CON.) [Concomitant]

REACTIONS (6)
  - ANTICONVULSANT DRUG LEVEL DECREASED [None]
  - GRAND MAL CONVULSION [None]
  - HEART RATE INCREASED [None]
  - PALPITATIONS [None]
  - POSTICTAL STATE [None]
  - RETCHING [None]
